FAERS Safety Report 13143248 (Version 1)
Quarter: 2017Q1

REPORT INFORMATION
  Report Type: Spontaneous
  Country: ES (occurrence: ES)
  Receive Date: 20170124
  Receipt Date: 20170124
  Transmission Date: 20170428
  Serious: Yes (Other)
  Sender: FDA-Public Use
  Company Number: ES-GLAXOSMITHKLINE-ES2017GSK006354

PATIENT

DRUGS (6)
  1. ATOSIBAN [Suspect]
     Active Substance: ATOSIBAN
     Indication: ENCEPHALITIS
     Route: 064
  2. DIAZEPAM. [Suspect]
     Active Substance: DIAZEPAM
     Indication: SEIZURE
     Route: 064
  3. ACICLOVIR [Suspect]
     Active Substance: ACYCLOVIR
     Indication: ENCEPHALITIS
     Route: 064
  4. ACICLOVIR [Suspect]
     Active Substance: ACYCLOVIR
     Indication: HERPES SIMPLEX
  5. ATOSIBAN [Suspect]
     Active Substance: ATOSIBAN
     Indication: HERPES SIMPLEX
  6. BETAMETHASONE. [Suspect]
     Active Substance: BETAMETHASONE
     Indication: MATERNAL THERAPY TO ENHANCE FOETAL LUNG MATURITY
     Route: 064

REACTIONS (3)
  - Premature baby [Unknown]
  - Bradycardia foetal [Unknown]
  - Foetal exposure during pregnancy [Unknown]
